FAERS Safety Report 7125000-2 (Version None)
Quarter: 2010Q4

REPORT INFORMATION
  Report Type: 
  Country: None (occurrence: None)
  Receive Date: 20101129
  Receipt Date: 20101118
  Transmission Date: 20110411
  Serious: Yes (Other)
  Sender: FDA-Public Use
  Company Number: DE-NOVOPROD-318707

PATIENT
  Age: 18 Year
  Sex: Male
  Weight: 87 kg

DRUGS (1)
  1. NORDITROPIN [Suspect]
     Indication: PRODUCT USED FOR UNKNOWN INDICATION
     Dosage: 0.5 MG, QD
     Route: 058
     Dates: start: 20060101, end: 20100101

REACTIONS (1)
  - EXTRA-OSSEOUS EWING'S SARCOMA [None]
